FAERS Safety Report 17574511 (Version 2)
Quarter: 2020Q2

REPORT INFORMATION
  Report Type: Spontaneous
  Country: GB (occurrence: GB)
  Receive Date: 20200324
  Receipt Date: 20200407
  Transmission Date: 20200713
  Serious: Yes (Other)
  Sender: FDA-Public Use
  Company Number: GB-BAXTER-2020BAX005897

PATIENT
  Age: 87 Year
  Sex: Female

DRUGS (9)
  1. RIVAROXABAN [Concomitant]
     Active Substance: RIVAROXABAN
     Indication: PRODUCT USED FOR UNKNOWN INDICATION
     Route: 065
  2. LOSARTAN. [Concomitant]
     Active Substance: LOSARTAN
     Indication: PRODUCT USED FOR UNKNOWN INDICATION
     Route: 065
  3. FUROSEMIDE 10MG/ML SOLUTION FOR INJECTION [Suspect]
     Active Substance: FUROSEMIDE
     Dosage: FREQUENCY: ONCE
     Route: 042
     Dates: start: 20200215
  4. DIGOXIN. [Concomitant]
     Active Substance: DIGOXIN
     Indication: PRODUCT USED FOR UNKNOWN INDICATION
     Route: 065
  5. FUROSEMIDE 10MG/ML SOLUTION FOR INJECTION [Suspect]
     Active Substance: FUROSEMIDE
     Indication: CARDIAC FAILURE CONGESTIVE
     Dosage: FREQUENCY: TWICE DAILY MORNING AND NIGHT;
     Route: 042
     Dates: start: 20200216
  6. FUROSEMIDE. [Suspect]
     Active Substance: FUROSEMIDE
     Indication: OEDEMA
     Dosage: FREQUENCY: TWICE DAILY MORNING AND NIGHT
     Route: 048
     Dates: end: 20200225
  7. FERROUS FUMARATE [Concomitant]
     Active Substance: FERROUS FUMARATE
     Indication: PRODUCT USED FOR UNKNOWN INDICATION
     Route: 065
  8. PARACETAMOL [Concomitant]
     Active Substance: ACETAMINOPHEN
     Indication: PRODUCT USED FOR UNKNOWN INDICATION
     Route: 065
  9. FUROSEMIDE 10MG/ML SOLUTION FOR INJECTION [Suspect]
     Active Substance: FUROSEMIDE
     Indication: OEDEMA
     Dosage: FREQUENCY: TWICE DAILY MORNING AND NIGHT;
     Route: 042

REACTIONS (11)
  - Loss of consciousness [Recovered/Resolved]
  - Fatigue [Unknown]
  - Confusional state [Unknown]
  - Malaise [Recovered/Resolved]
  - Body temperature increased [Unknown]
  - Fall [Unknown]
  - Head injury [Unknown]
  - Hallucination [Recovered/Resolved]
  - Somnolence [Recovered/Resolved]
  - Cough [Unknown]
  - Chromaturia [Unknown]

NARRATIVE: CASE EVENT DATE: 20200219
